FAERS Safety Report 20089682 (Version 1)
Quarter: 2021Q4

REPORT INFORMATION
  Report Type: Report from Study
  Country: US (occurrence: US)
  Receive Date: 20211119
  Receipt Date: 20211119
  Transmission Date: 20220304
  Serious: No
  Sender: FDA-Public Use
  Company Number: US-NOVARTISTESTPH-NVSC2021US264551

PATIENT
  Sex: Female

DRUGS (1)
  1. COSENTYX [Suspect]
     Active Substance: SECUKINUMAB
     Indication: Psoriatic arthropathy
     Route: 065

REACTIONS (7)
  - Pyrexia [Unknown]
  - Chest discomfort [Unknown]
  - Discomfort [Unknown]
  - Eye pain [Unknown]
  - Illness [Unknown]
  - Headache [Unknown]
  - Nausea [Unknown]
